FAERS Safety Report 7782539-4 (Version None)
Quarter: 2011Q3

REPORT INFORMATION
  Report Type: 
  Country: None (occurrence: None)
  Receive Date: 20110923
  Receipt Date: 20110913
  Transmission Date: 20111222
  Serious: Yes (Hospitalization)
  Sender: FDA-Public Use
  Company Number: 2005-128270-NL

PATIENT
  Age: 74 Year
  Sex: Female

DRUGS (6)
  1. ZOCOR [Concomitant]
  2. LORAZEPAM [Concomitant]
  3. INDAPAMIDE [Suspect]
     Dosage: 1.5 MG;QD;PO
     Route: 048
     Dates: end: 20050414
  4. OLMESARTAN MEDOXOMIL [Suspect]
     Dosage: 1 DF; QD; PO
     Route: 048
     Dates: end: 20050414
  5. MIRTAZAPINE [Suspect]
     Indication: DEPRESSION
     Dosage: 45 MG;QD;PO   60 MG;QD;PO
     Route: 048
     Dates: start: 20050408, end: 20050414
  6. MIRTAZAPINE [Suspect]
     Indication: DEPRESSION
     Dosage: 45 MG;QD;PO   60 MG;QD;PO
     Route: 048
     Dates: start: 20041124, end: 20050407

REACTIONS (4)
  - MALAISE [None]
  - CONSTIPATION [None]
  - ABDOMINAL PAIN [None]
  - HYPONATRAEMIA [None]
